FAERS Safety Report 7919266-6 (Version None)
Quarter: 2011Q4

REPORT INFORMATION
  Report Type: 
  Country: None (occurrence: None)
  Receive Date: 20111116
  Receipt Date: 20111116
  Transmission Date: 20120403
  Serious: Yes (Hospitalization)
  Sender: FDA-Public Use
  Company Number: None

PATIENT
  Age: 94 Year
  Sex: Female
  Weight: 72.3 kg

DRUGS (2)
  1. ASPIRIN [Suspect]
     Indication: ATRIAL FIBRILLATION
     Dosage: 325 MG DAILY PO CHRONIC
     Route: 048
  2. LOVENOX [Suspect]
     Indication: TRANSIENT ISCHAEMIC ATTACK
     Dosage: 40 MG DAILY SQ RECENT
     Route: 058

REACTIONS (2)
  - HAEMATEMESIS [None]
  - VOMITING PROJECTILE [None]
